FAERS Safety Report 13433845 (Version 1)
Quarter: 2017Q2

REPORT INFORMATION
  Report Type: Report from Study
  Country: JP (occurrence: JP)
  Receive Date: 20170412
  Receipt Date: 20170412
  Transmission Date: 20170830
  Serious: Yes (Other)
  Sender: FDA-Public Use
  Company Number: PHHY2011JP125330

PATIENT
  Age: 57 Year
  Sex: Female
  Weight: 75 kg

DRUGS (3)
  1. XELODA [Suspect]
     Active Substance: CAPECITABINE
     Indication: PRODUCT USED FOR UNKNOWN INDICATION
     Dosage: 1800 MG, UNK
     Route: 048
     Dates: start: 20090722, end: 20091125
  2. XELODA [Suspect]
     Active Substance: CAPECITABINE
     Dosage: 1200 MG, UNK
     Route: 048
     Dates: start: 20091126
  3. TYKERB [Suspect]
     Active Substance: LAPATINIB DITOSYLATE
     Indication: BREAST CANCER
     Dosage: 1250 MG, UNK
     Route: 048
     Dates: start: 20090722

REACTIONS (3)
  - Retinal haemorrhage [Not Recovered/Not Resolved]
  - Pigmentation disorder [Recovering/Resolving]
  - Palmar-plantar erythrodysaesthesia syndrome [Recovered/Resolved]

NARRATIVE: CASE EVENT DATE: 200910
